FAERS Safety Report 4517581-X (Version None)
Quarter: 2004Q4

REPORT INFORMATION
  Report Type: 
  Country: None (occurrence: None)
  Receive Date: 20041203
  Receipt Date: 20020207
  Transmission Date: 20050328
  Serious: Yes (Hospitalization, Other)
  Sender: FDA-Public Use
  Company Number: US-BRISTOL-MYERS SQUIBB COMPANY-11723939

PATIENT
  Sex: Male
  Weight: 2 kg

DRUGS (9)
  1. ZERIT [Suspect]
     Dosage: ONGOING THE FIRST 3 MONTHS OF PREGNANCY
     Route: 064
     Dates: start: 19970601, end: 20010501
  2. VIDEX [Suspect]
     Dosage: ONGOING FOR THE FIRST THREE MONTHS OF PREGNANCY
     Route: 064
     Dates: start: 19990601, end: 20011022
  3. ABACAVIR [Suspect]
     Dosage: FROM 2 MONTHS GESTATION
     Route: 064
     Dates: start: 20010301, end: 20011022
  4. NEVIRAPINE [Suspect]
     Dosage: EXPOSURE BEGAN AT CONCEPTION.
     Route: 064
     Dates: start: 19990601, end: 20011022
  5. ZIDOVUDINE [Suspect]
     Dosage: ONGOING FROM MONTH 3 FOR THE REMAINER OF THE PREGNANCY
     Route: 064
     Dates: start: 20010501, end: 20011022
  6. FOLIC ACID [Concomitant]
     Dosage: EXPOSURE DURING GESTATION.  DOSAGE FORM = TABLET.
     Route: 064
  7. COTRIM [Concomitant]
     Dosage: EXPOSURE DURING GESTATION. ^960 MG DAILY^
     Route: 064
  8. FERROUS SULFATE TAB [Concomitant]
     Dosage: EXPOSURE DURING GESTATION.  DOSAGE FORM = TABLET.
     Route: 064
  9. DEXTROSE [Concomitant]
     Route: 041

REACTIONS (7)
  - BLOOD INSULIN INCREASED [None]
  - CAESAREAN SECTION [None]
  - DRUG EXPOSURE DURING PREGNANCY [None]
  - FOETAL DISTRESS SYNDROME [None]
  - HYPOGLYCAEMIA NEONATAL [None]
  - NERVOUS SYSTEM DISORDER [None]
  - SMALL FOR DATES BABY [None]
